FAERS Safety Report 9807626 (Version 1)
Quarter: 2014Q1

REPORT INFORMATION
  Report Type: Spontaneous
  Country: HK (occurrence: HK)
  Receive Date: 20140110
  Receipt Date: 20140110
  Transmission Date: 20141002
  Serious: Yes (Hospitalization)
  Sender: FDA-Public Use
  Company Number: HK-AMGEN-HKGSP2014001176

PATIENT
  Sex: Female

DRUGS (1)
  1. ENBREL [Suspect]
     Indication: ANKYLOSING SPONDYLITIS
     Dosage: UNK
     Route: 065
     Dates: start: 201303

REACTIONS (7)
  - Enteritis [Unknown]
  - Immune system disorder [Unknown]
  - Dry skin [Unknown]
  - Rhinitis allergic [Unknown]
  - Back pain [Unknown]
  - Drug effect incomplete [Unknown]
  - Tonsillitis [Unknown]
